FAERS Safety Report 23305553 (Version 1)
Quarter: 2023Q4

REPORT INFORMATION
  Report Type: Spontaneous
  Country: CA (occurrence: CA)
  Receive Date: 20231218
  Receipt Date: 20231218
  Transmission Date: 20240110
  Serious: Yes (Other)
  Sender: FDA-Public Use
  Company Number: CA-002147023-NVSC2023CA261105

PATIENT
  Age: 65 Year
  Sex: Male

DRUGS (8)
  1. ENTRESTO [Suspect]
     Active Substance: SACUBITRIL\VALSARTAN
     Indication: Arteriosclerosis
     Dosage: 1 DOSAGE FORM, BID
     Route: 065
  2. OLMESARTAN [Suspect]
     Active Substance: OLMESARTAN
     Indication: Product used for unknown indication
     Dosage: UNK
     Route: 065
  3. ALDACTONE [Concomitant]
     Active Substance: SPIRONOLACTONE
     Indication: Product used for unknown indication
     Dosage: 1 TABLET, QD FOR 90 DAYS
     Route: 048
  4. ASPIRIN [Concomitant]
     Active Substance: ASPIRIN
     Indication: Product used for unknown indication
     Dosage: UNK, QD
     Route: 065
  5. DAPAGLIFLOZIN [Concomitant]
     Active Substance: DAPAGLIFLOZIN
     Dosage: 5MG, 1 DOSAGE FORM, QD
     Route: 065
  6. DAPAGLIFLOZIN [Concomitant]
     Active Substance: DAPAGLIFLOZIN
     Indication: Product used for unknown indication
     Dosage: 1 TABLET, QD FOR 90 DAYS
     Route: 065
  7. IVABRADINE HCL [Concomitant]
     Indication: Product used for unknown indication
     Dosage: 1 TABLET, BID FOR 60 DAYS
     Route: 048
  8. PRAVACHOL [Concomitant]
     Active Substance: PRAVASTATIN SODIUM
     Indication: Product used for unknown indication
     Dosage: 1 TABLET, QD FOR 90 DAYS
     Route: 048

REACTIONS (2)
  - Myocardial infarction [Unknown]
  - Left ventricular dysfunction [Unknown]
